FAERS Safety Report 14394629 (Version 2)
Quarter: 2018Q1

REPORT INFORMATION
  Report Type: Spontaneous
  Country: US (occurrence: US)
  Receive Date: 20180116
  Receipt Date: 20180228
  Transmission Date: 20180509
  Serious: Yes (Other)
  Sender: FDA-Public Use
  Company Number: US-PFIZER INC-2018017384

PATIENT
  Age: 35 Year
  Sex: Female

DRUGS (2)
  1. ENBREL [Suspect]
     Active Substance: ETANERCEPT
     Indication: PSORIASIS
     Dosage: 50 MG, 2 TIMES/WK
     Route: 065
     Dates: start: 2016
  2. DOXYCYCLINE MONOHYDRATE [Suspect]
     Active Substance: DOXYCYCLINE
     Indication: ABSCESS
     Dosage: UNK
     Dates: start: 20180110

REACTIONS (4)
  - Acne [Unknown]
  - Hypersensitivity [Unknown]
  - Product prescribing issue [Unknown]
  - Abscess bacterial [Not Recovered/Not Resolved]

NARRATIVE: CASE EVENT DATE: 2016
